FAERS Safety Report 7781532-5 (Version None)
Quarter: 2011Q3

REPORT INFORMATION
  Report Type: 
  Country: None (occurrence: None)
  Receive Date: 20110927
  Receipt Date: 20110914
  Transmission Date: 20111222
  Serious: No
  Sender: FDA-Public Use
  Company Number: US-B.I. PHARMACEUTICALS,INC./RIDGEFIELD-2011-BP-22218BP

PATIENT
  Age: 87 Year
  Sex: Female

DRUGS (8)
  1. POTASSIUM [Concomitant]
     Indication: SUPPLEMENTATION THERAPY
     Dosage: 20 MEQ
     Route: 048
  2. TOPROL-XL [Concomitant]
     Indication: HYPERTENSION
     Dosage: 50 MG
     Route: 048
  3. CENTRUM [Concomitant]
     Indication: SUPPLEMENTATION THERAPY
     Route: 048
  4. NORVASC [Concomitant]
     Indication: HYPERTENSION
     Dosage: 5 MG
     Route: 048
  5. CALTRATE WITH VITAMIN D [Concomitant]
     Indication: SUPPLEMENTATION THERAPY
     Dosage: 600 MG
     Route: 048
  6. TOPROL-XL [Concomitant]
     Indication: ATRIAL FIBRILLATION
  7. PRADAXA [Suspect]
     Indication: ATRIAL FIBRILLATION
     Dosage: 300 MG
     Route: 048
     Dates: start: 20110801
  8. SPIRONOLACTONE [Concomitant]
     Indication: HYPERTENSION
     Dosage: 25 MG
     Route: 048

REACTIONS (6)
  - ANORECTAL DISCOMFORT [None]
  - PRURITUS GENERALISED [None]
  - ARTHRALGIA [None]
  - NAUSEA [None]
  - DYSPEPSIA [None]
  - MUSCULOSKELETAL PAIN [None]
